FAERS Safety Report 21807209 (Version 4)
Quarter: 2023Q1

REPORT INFORMATION
  Report Type: Report from Study
  Country: US (occurrence: US)
  Receive Date: 20230102
  Receipt Date: 20230217
  Transmission Date: 20230417
  Serious: Yes (Hospitalization, Other)
  Sender: FDA-Public Use
  Company Number: US-BEH-2022151985

PATIENT
  Age: 80 Year
  Sex: Male

DRUGS (2)
  1. HIZENTRA [Suspect]
     Active Substance: HUMAN IMMUNOGLOBULIN G
     Indication: Chronic inflammatory demyelinating polyradiculoneuropathy
     Dosage: 16 GRAM, QW
     Route: 058
     Dates: start: 20221021
  2. HIZENTRA [Suspect]
     Active Substance: HUMAN IMMUNOGLOBULIN G
     Dosage: UNK
     Route: 065
     Dates: start: 20221205

REACTIONS (21)
  - Feeling abnormal [Unknown]
  - Full blood count abnormal [Unknown]
  - Blood creatinine increased [Not Recovered/Not Resolved]
  - Blood potassium increased [Not Recovered/Not Resolved]
  - No adverse event [Unknown]
  - Product dose omission issue [Unknown]
  - No adverse event [Recovered/Resolved]
  - Incorrect product administration duration [Recovered/Resolved]
  - No adverse event [Unknown]
  - Therapy interrupted [Unknown]
  - Cardiac operation [Recovering/Resolving]
  - Renal impairment [Unknown]
  - No adverse event [Recovering/Resolving]
  - Inappropriate schedule of product administration [Recovering/Resolving]
  - No adverse event [Recovered/Resolved]
  - Product dose omission issue [Recovered/Resolved]
  - Immune thrombocytopenia [Recovered/Resolved]
  - Gastrointestinal haemorrhage [Unknown]
  - Therapy interrupted [Unknown]
  - No adverse event [Unknown]
  - Tricuspid valve replacement [Unknown]

NARRATIVE: CASE EVENT DATE: 20221101
